FAERS Safety Report 5068182-9 (Version None)
Quarter: 2006Q3

REPORT INFORMATION
  Report Type: 
  Country: None (occurrence: None)
  Receive Date: 20060731
  Receipt Date: 20060724
  Transmission Date: 20061208
  Serious: Yes (Hospitalization)
  Sender: FDA-Public Use
  Company Number: PHEH2006US09531

PATIENT
  Age: 42 Year
  Sex: Female
  Weight: 77.1 kg

DRUGS (1)
  1. LAMISIL [Suspect]
     Indication: SKIN FISSURES
     Dosage: BID, TOPICAL
     Route: 061
     Dates: start: 20060529, end: 20060722

REACTIONS (3)
  - ABDOMINAL PAIN UPPER [None]
  - CHOLECYSTECTOMY [None]
  - DRUG INEFFECTIVE [None]
